FAERS Safety Report 9470986 (Version 1)
Quarter: 2013Q3

REPORT INFORMATION
  Report Type: Spontaneous
  Country: US (occurrence: US)
  Receive Date: 20130822
  Receipt Date: 20130822
  Transmission Date: 20140515
  Serious: Yes (Other)
  Sender: FDA-Public Use
  Company Number: US-JNJFOC-20130810388

PATIENT
  Age: 21 Year
  Sex: Female

DRUGS (2)
  1. INVEGA [Suspect]
     Indication: ATTENTION-SEEKING BEHAVIOUR
     Dosage: THE PATIENT STARTED TREATMENT WITH PALIPERIDONE IN APR OR MAY-2013.
     Route: 048
     Dates: start: 2013, end: 201306
  2. INVEGA [Suspect]
     Indication: ANGER
     Dosage: THE PATIENT STARTED TREATMENT WITH PALIPERIDONE IN APR OR MAY-2013.
     Route: 048
     Dates: start: 2013, end: 201306

REACTIONS (3)
  - Convulsion [Recovered/Resolved]
  - Off label use [Unknown]
  - Incorrect dose administered [Unknown]
